FAERS Safety Report 16908169 (Version 1)
Quarter: 2019Q4

REPORT INFORMATION
  Report Type: Spontaneous
  Country: US (occurrence: US)
  Receive Date: 20190820
  Receipt Date: 20190820
  Transmission Date: 20200122
  Serious: No
  Sender: FDA-Public Use
  Company Number: None

PATIENT
  Age: 62 Year
  Sex: Female

DRUGS (1)
  1. TEMOZOLOMIDE ++ 180MG [Suspect]
     Active Substance: TEMOZOLOMIDE
     Indication: BRAIN NEOPLASM MALIGNANT
     Dosage: ?          OTHER FREQUENCY:SEE OTHER RELEVANT;?
     Route: 048
     Dates: start: 20190726

REACTIONS (1)
  - Vascular rupture [None]

NARRATIVE: CASE EVENT DATE: 20190726
